FAERS Safety Report 7972573 (Version 3)
Quarter: 2012Q4

REPORT INFORMATION
  Report Type: 
  Country: US (occurrence: US)
  Receive Date: 20110603
  Receipt Date: 20121004
  Transmission Date: 20130627
  Serious: Yes (Hospitalization)
  Sender: FDA-Public Use
  Company Number: US-BAYER-201023787NA

PATIENT
  Age: 27 Year
  Sex: Female
  Weight: 113.38 kg

DRUGS (4)
  1. YAZ [Suspect]
     Indication: PRODUCT USED FOR UNKNOWN INDICATION
     Dosage: UNK
     Dates: start: 2005, end: 2009
  2. YAZ [Suspect]
     Indication: PREMENSTRUAL SYNDROME
  3. CALCIUM [Concomitant]
     Dosage: 500 mg, BID
  4. MULTIVITAMINS [Concomitant]
     Dosage: daily

REACTIONS (3)
  - Cholecystitis chronic [None]
  - Injury [None]
  - Cholecystitis chronic [None]
